FAERS Safety Report 9199022 (Version 1)
Quarter: 2013Q1

REPORT INFORMATION
  Report Type: Spontaneous
  Country: BR (occurrence: BR)
  Receive Date: 20130329
  Receipt Date: 20130329
  Transmission Date: 20140127
  Serious: Yes (Death, Other)
  Sender: FDA-Public Use
  Company Number: BR-009507513-1303BRA013484

PATIENT
  Age: 68 None
  Sex: Female

DRUGS (2)
  1. VYTORIN [Suspect]
     Indication: CEREBROVASCULAR ACCIDENT PROPHYLAXIS
     Dosage: 1 TABLET, QD
     Route: 048
     Dates: start: 201208
  2. VYTORIN [Suspect]
     Indication: ISCHAEMIC HEART DISEASE PROPHYLAXIS

REACTIONS (2)
  - Myocardial infarction [Fatal]
  - Off label use [Unknown]
